FAERS Safety Report 10648541 (Version 2)
Quarter: 2015Q1

REPORT INFORMATION
  Report Type: Spontaneous
  Country: US (occurrence: US)
  Receive Date: 20141212
  Receipt Date: 20150209
  Transmission Date: 20150720
  Serious: No
  Sender: FDA-Public Use
  Company Number: US-ASTRAZENECA-2014SE93144

PATIENT
  Age: 71 Year
  Sex: Female

DRUGS (29)
  1. ENTOCORT EC [Suspect]
     Active Substance: BUDESONIDE
     Indication: IRRITABLE BOWEL SYNDROME
     Route: 048
     Dates: start: 2013
  2. LISINOPRIL. [Suspect]
     Active Substance: LISINOPRIL
     Indication: HYPERTENSION
     Route: 048
  3. DELVICHOL 1 HOUR BEFORE MEAL OR 2 HOURS AFTER MEAL [Concomitant]
     Indication: IRRITABLE BOWEL SYNDROME
     Route: 048
  4. ZOLOFT [Concomitant]
     Active Substance: SERTRALINE HYDROCHLORIDE
  5. ALPRAZOLAM. [Concomitant]
     Active Substance: ALPRAZOLAM
  6. STOOL SOFTENER [Concomitant]
     Active Substance: DOCUSATE CALCIUM
  7. ENTOCORT EC [Suspect]
     Active Substance: BUDESONIDE
     Indication: GASTROENTERITIS
     Route: 048
     Dates: start: 2013
  8. CULTURELLE 10 B CELL [Concomitant]
  9. DELVICHOL 1 HOUR BEFORE MEAL OR 2 HOURS AFTER MEAL [Concomitant]
     Indication: ILL-DEFINED DISORDER
     Route: 048
  10. ACCU CHEK COMPACT [Concomitant]
  11. LANCETS [Concomitant]
     Active Substance: DEVICE
  12. VITAMIN D [Concomitant]
     Active Substance: CHOLECALCIFEROL
  13. DELZICOL [Concomitant]
     Active Substance: MESALAMINE
  14. OMEPRAZOLE. [Suspect]
     Active Substance: OMEPRAZOLE
     Indication: GASTROOESOPHAGEAL REFLUX DISEASE
     Route: 048
  15. EPIPEN [Concomitant]
     Active Substance: EPINEPHRINE
  16. ACCU CHEK SOFTCLIX [Concomitant]
  17. TRIAMCINOLONE ACETONIDE. [Concomitant]
     Active Substance: TRIAMCINOLONE ACETONIDE
  18. FIBER [Concomitant]
     Active Substance: PSYLLIUM HUSK
  19. POTASSIUM SUPPLEMENT 3 MONTHS AGO [Concomitant]
     Indication: BLOOD POTASSIUM DECREASED
     Route: 048
  20. ENTOCORT EC [Suspect]
     Active Substance: BUDESONIDE
     Indication: COLITIS ULCERATIVE
     Route: 048
     Dates: start: 2013
  21. LIPITOR [Concomitant]
     Active Substance: ATORVASTATIN CALCIUM
     Indication: BLOOD CHOLESTEROL INCREASED
     Route: 048
  22. JANUVIA [Concomitant]
     Active Substance: SITAGLIPTIN PHOSPHATE
     Indication: BLOOD GLUCOSE ABNORMAL
     Route: 048
  23. HYDROCHLORATHIAZIDE [Concomitant]
     Active Substance: HYDROCHLOROTHIAZIDE
     Indication: BLOOD PRESSURE ABNORMAL
     Route: 048
  24. DELVICHOL 1 HOUR BEFORE MEAL OR 2 HOURS AFTER MEAL [Concomitant]
     Indication: COLITIS ULCERATIVE
     Route: 048
  25. MESALAMINE. [Concomitant]
     Active Substance: MESALAMINE
  26. POTASSIUM CHLORIDE CRYS [Concomitant]
  27. SEROQUEL [Suspect]
     Active Substance: QUETIAPINE FUMARATE
     Route: 048
  28. ATORVASTATIN CALCIUM. [Suspect]
     Active Substance: ATORVASTATIN CALCIUM
     Route: 065
  29. NEURONTIN [Concomitant]
     Active Substance: GABAPENTIN

REACTIONS (8)
  - Diarrhoea [Unknown]
  - Hyperhidrosis [Unknown]
  - Therapeutic response unexpected [Unknown]
  - Drug dose omission [Unknown]
  - Intentional product misuse [Unknown]
  - Muscle spasms [Unknown]
  - Off label use [Unknown]
  - Drug ineffective [Unknown]

NARRATIVE: CASE EVENT DATE: 2013
